APPROVED DRUG PRODUCT: SCABENE
Active Ingredient: LINDANE
Strength: 1%
Dosage Form/Route: SHAMPOO;TOPICAL
Application: A087940 | Product #001
Applicant: STIEFEL LABORATORIES INC
Approved: Apr 8, 1983 | RLD: No | RS: No | Type: DISCN